FAERS Safety Report 8314652-7 (Version None)
Quarter: 2012Q2

REPORT INFORMATION
  Report Type: 
  Country: None (occurrence: None)
  Receive Date: 20120426
  Receipt Date: 20120419
  Transmission Date: 20120825
  Serious: Yes (Death, Life-Threatening, Hospitalization)
  Sender: FDA-Public Use
  Company Number: DE-ROCHE-714751

PATIENT
  Sex: Female

DRUGS (13)
  1. ABATACEPT [Suspect]
     Indication: RHEUMATOID ARTHRITIS
     Route: 065
     Dates: start: 20090901, end: 20091201
  2. METHOTREXATE [Suspect]
     Route: 048
     Dates: start: 20080401, end: 20090601
  3. METHOTREXATE [Suspect]
     Route: 048
     Dates: start: 20090701, end: 20100101
  4. AMITRIPTYLINE HCL [Concomitant]
     Dosage: AT BEDTIME
  5. PREDNISOLONE [Concomitant]
  6. METOPROLOL TARTRATE [Concomitant]
  7. ZOLEDRONOC ACID [Concomitant]
     Indication: OSTEOPOROSIS
     Dosage: SECOND INFUSION IN JUN 2009
     Route: 042
  8. METHOTREXATE [Suspect]
     Indication: RHEUMATOID ARTHRITIS
     Route: 048
     Dates: start: 19930301, end: 20020401
  9. REPAGLINIDE [Concomitant]
  10. METHOTREXATE [Suspect]
     Route: 048
     Dates: start: 20030501, end: 20070901
  11. HYDROMORPHONE HCL [Concomitant]
  12. DHC [Concomitant]
  13. MABTHERA [Suspect]
     Indication: RHEUMATOID ARTHRITIS
     Route: 065

REACTIONS (2)
  - GASTRIC CANCER [None]
  - METASTATIC GASTRIC CANCER [None]
